FAERS Safety Report 8031674-4 (Version None)
Quarter: 2012Q1

REPORT INFORMATION
  Report Type: 
  Country: None (occurrence: None)
  Receive Date: 20120109
  Receipt Date: 20111229
  Transmission Date: 20120608
  Serious: Yes (Other)
  Sender: FDA-Public Use
  Company Number: US-ELI_LILLY_AND_COMPANY-US201201000963

PATIENT
  Sex: Female

DRUGS (2)
  1. CHEMOTHERAPEUTICS [Concomitant]
     Indication: SMALL CELL LUNG CANCER STAGE UNSPECIFIED
  2. FORTEO [Suspect]
     Indication: OSTEOPOROSIS
     Dosage: 20 UG, QD
     Dates: start: 20100101

REACTIONS (2)
  - DRUG DOSE OMISSION [None]
  - SPINAL COLUMN STENOSIS [None]
